FAERS Safety Report 5810385-7 (Version None)
Quarter: 2008Q3

REPORT INFORMATION
  Report Type: 
  Country: None (occurrence: None)
  Receive Date: 20080715
  Receipt Date: 20080701
  Transmission Date: 20090109
  Serious: Yes (Other)
  Sender: FDA-Public Use
  Company Number: IN-PURDUE-GBR_2008_0004188

PATIENT
  Age: 80 Year
  Sex: Male

DRUGS (11)
  1. MORPHINE [Suspect]
     Indication: PAIN
     Dosage: 30 MG, Q4H
     Route: 048
  2. MORPHINE [Suspect]
     Dosage: 10 MG, UNK
     Route: 048
  3. MORPHINE [Suspect]
     Dosage: 20 MG, Q4H
     Route: 048
  4. MORPHINE [Suspect]
     Dosage: 15 MG, Q4H
     Route: 048
  5. MORPHINE [Suspect]
     Dosage: 5 MG, Q4H
     Route: 048
  6. ACETAMINOPHEN [Concomitant]
     Dosage: 375 MG, Q8H
     Route: 065
  7. ACETAMINOPHEN [Concomitant]
     Dosage: 500 UNK, UNK
     Route: 065
  8. AMITRIPTYLINE HCL [Suspect]
     Indication: PAIN
     Dosage: 25 MG, NOCTE
     Route: 065
  9. BISACODYL [Concomitant]
     Dosage: UNK, UNK
     Route: 065
  10. IBUPROFEN [Concomitant]
     Dosage: 400 MG, UNK
     Route: 065
  11. RANITIDINE HCL [Suspect]
     Indication: PAIN
     Dosage: 150 UNK, UNK
     Route: 065

REACTIONS (5)
  - DRUG INTERACTION [None]
  - MIOSIS [None]
  - OVERDOSE [None]
  - RESPIRATORY DEPRESSION [None]
  - SEDATION [None]
